FAERS Safety Report 10096112 (Version 1)
Quarter: 2014Q2

REPORT INFORMATION
  Report Type: Report from Study
  Country: CA (occurrence: CA)
  Receive Date: 20140422
  Receipt Date: 20140422
  Transmission Date: 20141212
  Serious: Yes (Other)
  Sender: FDA-Public Use
  Company Number: CA-BRISTOL-MYERS SQUIBB COMPANY-20629176

PATIENT
  Age: 59 Year
  Sex: Male

DRUGS (4)
  1. ORENCIA [Suspect]
     Indication: RHEUMATOID ARTHRITIS
     Dosage: 1DF = 1000 UNITS NOS
     Dates: start: 20140212
  2. PREDNISONE [Concomitant]
  3. NAPROXEN [Concomitant]
  4. LEFLUNOMIDE [Concomitant]

REACTIONS (4)
  - Pulmonary fibrosis [Unknown]
  - Productive cough [Unknown]
  - Night sweats [Unknown]
  - Peripheral swelling [Unknown]
